FAERS Safety Report 10798705 (Version 1)
Quarter: 2015Q1

REPORT INFORMATION
  Report Type: Report from Study
  Country: US (occurrence: US)
  Receive Date: 20150216
  Receipt Date: 20150216
  Transmission Date: 20150721
  Serious: Yes (Death, Hospitalization)
  Sender: FDA-Public Use
  Company Number: US-ABBVIE-15P-163-1346908-00

PATIENT
  Age: 63 Year
  Sex: Female
  Weight: 38.59 kg

DRUGS (1)
  1. MARINOL [Suspect]
     Active Substance: DRONABINOL
     Indication: INCREASED APPETITE
     Route: 065
     Dates: end: 20150128

REACTIONS (5)
  - Hepatic cancer stage IV [Fatal]
  - Lung carcinoma cell type unspecified stage IV [Fatal]
  - Dehydration [Not Recovered/Not Resolved]
  - Bone neoplasm [Fatal]
  - Brain neoplasm [Fatal]

NARRATIVE: CASE EVENT DATE: 201501
